FAERS Safety Report 10918350 (Version 1)
Quarter: 2015Q1

REPORT INFORMATION
  Report Type: Spontaneous
  Country: US (occurrence: US)
  Receive Date: 20150316
  Receipt Date: 20150316
  Transmission Date: 20150721
  Serious: No
  Sender: FDA-Public Use
  Company Number: US-GALDERMA-US14001846

PATIENT
  Age: 76 Year
  Sex: Female

DRUGS (8)
  1. NOXZEMA CLEANSER [Concomitant]
     Indication: THERAPEUTIC SKIN CARE TOPICAL
     Route: 061
  2. ZOCOR [Concomitant]
     Active Substance: SIMVASTATIN
     Dosage: 20 MG
  3. LISINOPRIL. [Concomitant]
     Active Substance: LISINOPRIL
  4. TRI-LUMA [Suspect]
     Active Substance: FLUOCINOLONE ACETONIDE\HYDROQUINONE\TRETINOIN
     Indication: PIGMENTATION DISORDER
     Route: 061
     Dates: start: 201404, end: 20140520
  5. ONCE A DAY VITAMIN [Concomitant]
  6. GLIPIZIDE. [Concomitant]
     Active Substance: GLIPIZIDE
     Dosage: 5 MG
  7. BABY ASPIRIN [Concomitant]
     Active Substance: ASPIRIN
  8. TRI-LUMA [Suspect]
     Active Substance: FLUOCINOLONE ACETONIDE\HYDROQUINONE\TRETINOIN
     Indication: RASH

REACTIONS (3)
  - Inappropriate schedule of drug administration [Recovered/Resolved]
  - Drug ineffective for unapproved indication [Not Recovered/Not Resolved]
  - Product use issue [Recovered/Resolved]

NARRATIVE: CASE EVENT DATE: 201404
